FAERS Safety Report 8922720 (Version 2)
Quarter: 2012Q4

REPORT INFORMATION
  Report Type: Report from Study
  Country: CA (occurrence: CA)
  Receive Date: 20121123
  Receipt Date: 20121203
  Transmission Date: 20130627
  Serious: Yes (Other)
  Sender: FDA-Public Use
  Company Number: CA-ROCHE-1157438

PATIENT
  Sex: Female
  Weight: 74 kg

DRUGS (8)
  1. TOCILIZUMAB [Suspect]
     Indication: RHEUMATOID ARTHRITIS
     Route: 042
     Dates: start: 20120921
  2. HYDROXYCHLOROQUINE [Concomitant]
  3. RAMIPRIL [Concomitant]
  4. CRESTOR [Concomitant]
  5. NEXIUM [Concomitant]
  6. ZOPICLONE [Concomitant]
  7. ASA [Concomitant]
  8. GRAVOL NATURAL SOURCE [Concomitant]

REACTIONS (5)
  - Hypoaesthesia [Recovered/Resolved]
  - Paraesthesia [Recovered/Resolved]
  - Stress [Recovering/Resolving]
  - Blood pressure increased [Unknown]
  - VIIth nerve paralysis [Unknown]
